FAERS Safety Report 7655300-9 (Version None)
Quarter: 2011Q3

REPORT INFORMATION
  Report Type: 
  Country: None (occurrence: None)
  Receive Date: 20110801
  Receipt Date: 20110714
  Transmission Date: 20111222
  Serious: Yes (Death, Life-Threatening, Hospitalization)
  Sender: FDA-Public Use
  Company Number: 2011MA008875

PATIENT
  Age: 21 Year
  Sex: Female

DRUGS (12)
  1. SULFATRIM [Suspect]
     Indication: PROPHYLAXIS
     Dosage: 5MG; Q6H IV
     Route: 042
     Dates: start: 20050101, end: 20080101
  2. SULFATRIM [Suspect]
     Indication: PNEUMOCYSTIS JIROVECI INFECTION
     Dosage: 5MG; Q6H IV
     Route: 042
     Dates: start: 20050101, end: 20080101
  3. TACROLIMUS [Concomitant]
  4. MYCOPHENOLATE MOFETIL [Concomitant]
  5. PREDNISOLONE [Concomitant]
  6. AMIODARONE HCL [Concomitant]
  7. FUROSEMIDE [Concomitant]
  8. ATPRVASTATIN [Concomitant]
  9. RAMIPRIL [Concomitant]
  10. ACYCLOVIR [Concomitant]
  11. MOFETIL [Concomitant]
  12. WARFARIN [Concomitant]

REACTIONS (12)
  - PNEUMOCYSTIS JIROVECI PNEUMONIA [None]
  - INFECTION IN AN IMMUNOCOMPROMISED HOST [None]
  - PROTHROMBIN TIME PROLONGED [None]
  - GENERAL PHYSICAL HEALTH DETERIORATION [None]
  - UPPER GASTROINTESTINAL HAEMORRHAGE [None]
  - INTERNATIONAL NORMALISED RATIO INCREASED [None]
  - HEPATIC FAILURE [None]
  - RENAL FAILURE [None]
  - SPUTUM RETENTION [None]
  - CARDIO-RESPIRATORY ARREST [None]
  - BLOOD PH DECREASED [None]
  - HYPOTENSION [None]
